FAERS Safety Report 10017773 (Version 1)
Quarter: 2014Q1

REPORT INFORMATION
  Report Type: Spontaneous
  Country: US (occurrence: US)
  Receive Date: 20140318
  Receipt Date: 20140318
  Transmission Date: 20141002
  Serious: Yes (Other)
  Sender: FDA-Public Use
  Company Number: US-BRISTOL-MYERS SQUIBB COMPANY-18839464

PATIENT
  Age: 70 Year
  Sex: Male

DRUGS (3)
  1. ERBITUX [Suspect]
     Dates: start: 20130412
  2. FENTANYL PATCH [Concomitant]
     Indication: PAIN
  3. MORPHINE [Concomitant]

REACTIONS (3)
  - Pruritus generalised [Unknown]
  - Skin disorder [Unknown]
  - Dry skin [Unknown]
